FAERS Safety Report 10365890 (Version 1)
Quarter: 2014Q3

REPORT INFORMATION
  Report Type: Spontaneous
  Country: DE (occurrence: None)
  Receive Date: 20140804
  Receipt Date: 20140804
  Transmission Date: 20150326
  Serious: Yes (Other)
  Sender: FDA-Public Use
  Company Number: DE-DEXPHARM-20140517

PATIENT
  Sex: Male

DRUGS (1)
  1. OMEPRAZOLE (OMEPRAZOLE STADA BRAND) [Suspect]
     Active Substance: OMEPRAZOLE
     Indication: GASTROOESOPHAGEAL REFLUX DISEASE
     Route: 048

REACTIONS (6)
  - Infection [None]
  - C-reactive protein increased [None]
  - Pyrexia [None]
  - Malaise [None]
  - Somnolence [None]
  - Leukopenia [None]

NARRATIVE: CASE EVENT DATE: 2014
